FAERS Safety Report 22290929 (Version 2)
Quarter: 2023Q2

REPORT INFORMATION
  Report Type: Spontaneous
  Country: GB (occurrence: GB)
  Receive Date: 20230506
  Receipt Date: 20230528
  Transmission Date: 20230721
  Serious: Yes (Life-Threatening, Hospitalization, Disabling, Other)
  Sender: FDA-Public Use
  Company Number: GB-MHRA-MED-202304210854211400-DSHWG

PATIENT
  Age: 15 Year
  Sex: Male

DRUGS (13)
  1. LACOSAMIDE [Suspect]
     Active Substance: LACOSAMIDE
     Indication: Seizure
     Dosage: 300 MILLIGRAM, ONCE A DAY
     Route: 065
     Dates: start: 20180208, end: 20180811
  2. LAMOTRIGINE [Suspect]
     Active Substance: LAMOTRIGINE
     Indication: Adverse drug reaction
     Dosage: MAXIMUM DOSE 250MG PER DAY
     Route: 065
     Dates: start: 20161012, end: 20180606
  3. LEVETIRACETAM [Suspect]
     Active Substance: LEVETIRACETAM
     Indication: Seizure
     Dosage: 1000 MILLIGRAM, ONCE A DAY
     Route: 065
     Dates: start: 20160429, end: 20170423
  4. LEVETIRACETAM [Suspect]
     Active Substance: LEVETIRACETAM
     Dosage: MAXIMUM DOSE 2000MG PER DAY
     Route: 065
     Dates: start: 20180616, end: 20190101
  5. PHENYTOIN [Suspect]
     Active Substance: PHENYTOIN
     Indication: Adverse drug reaction
     Dosage: 250 MILLIGRAM, ONCE A DAY
     Route: 065
     Dates: start: 20180612, end: 20200625
  6. CARBAMAZEPINE [Suspect]
     Active Substance: CARBAMAZEPINE
     Indication: Seizure
     Dosage: 200 MILLIGRAM, ONCE A DAY
     Route: 065
     Dates: start: 20160312, end: 20160429
  7. CLOBAZAM [Suspect]
     Active Substance: CLOBAZAM
     Indication: Seizure
     Dosage: MAXIMUM DOSE 20MG PER DAY
     Route: 065
     Dates: start: 20180609, end: 20190416
  8. VALPROATE SODIUM [Suspect]
     Active Substance: VALPROATE SODIUM
     Indication: Seizure
     Dosage: MAX DOSE 1200MG PER DAY
     Route: 065
     Dates: start: 20160429, end: 20160911
  9. VALPROATE SODIUM [Suspect]
     Active Substance: VALPROATE SODIUM
     Indication: Adverse drug reaction
     Dosage: 250 MILLIGRAM, ONCE A DAY
     Route: 065
     Dates: start: 20180612, end: 20200625
  10. VALPROATE SODIUM [Suspect]
     Active Substance: VALPROATE SODIUM
     Dosage: 200 MILLIGRAM, ONCE A DAY
     Route: 065
     Dates: start: 20160312, end: 20160429
  11. VALPROATE SODIUM [Suspect]
     Active Substance: VALPROATE SODIUM
     Indication: Seizure
     Dosage: 1000 MILLIGRAM, ONCE A DAY
     Route: 065
     Dates: start: 20160429, end: 20170423
  12. VALPROATE SODIUM [Suspect]
     Active Substance: VALPROATE SODIUM
     Dosage: 20 MILLIGRAM, ONCE A DAY(MAXIMUM)
     Route: 065
     Dates: start: 20180609, end: 20190416
  13. VALPROATE SODIUM [Suspect]
     Active Substance: VALPROATE SODIUM
     Dosage: 2000 MILLIGRAM, ONCE A DAY(MAXIMUM)
     Route: 065
     Dates: start: 20180616, end: 20190101

REACTIONS (4)
  - Seizure [Recovered/Resolved]
  - Memory impairment [Recovered/Resolved]
  - Medication error [Unknown]
  - Fatigue [Recovered/Resolved]

NARRATIVE: CASE EVENT DATE: 20180812
